FAERS Safety Report 6517748-5 (Version None)
Quarter: 2009Q4

REPORT INFORMATION
  Report Type: 
  Country: None (occurrence: None)
  Receive Date: 20091224
  Receipt Date: 20091216
  Transmission Date: 20100525
  Serious: Yes (Hospitalization)
  Sender: FDA-Public Use
  Company Number: US-ASTRAZENECA-2009SE32321

PATIENT
  Age: 58 Year
  Sex: Female

DRUGS (4)
  1. SEROQUEL [Suspect]
     Indication: SLEEP DISORDER
     Route: 048
     Dates: start: 20020101
  2. SEROQUEL [Suspect]
     Route: 048
     Dates: start: 20091210
  3. LORAZEPAM [Concomitant]
  4. RISPERIDONE [Concomitant]

REACTIONS (5)
  - ANXIETY [None]
  - DEATH OF RELATIVE [None]
  - DYSPHAGIA [None]
  - FEELING ABNORMAL [None]
  - LIP SWELLING [None]
